FAERS Safety Report 25763331 (Version 1)
Quarter: 2025Q3

REPORT INFORMATION
  Report Type: Spontaneous
  Country: US (occurrence: US)
  Receive Date: 20250905
  Receipt Date: 20250905
  Transmission Date: 20251021
  Serious: No
  Sender: ABBVIE
  Company Number: US-ABBVIE-6442371

PATIENT
  Sex: Female

DRUGS (1)
  1. RINVOQ [Suspect]
     Active Substance: UPADACITINIB
     Indication: Product used for unknown indication
     Route: 048

REACTIONS (8)
  - Feeling abnormal [Unknown]
  - Paraesthesia oral [Unknown]
  - Pharyngeal paraesthesia [Unknown]
  - Dizziness [Unknown]
  - Palpitations [Unknown]
  - Anxiety [Unknown]
  - Drug ineffective [Unknown]
  - Headache [Unknown]
